FAERS Safety Report 9975980 (Version 2)
Quarter: 2014Q1

REPORT INFORMATION
  Report Type: Spontaneous
  Country: US (occurrence: US)
  Receive Date: 20140306
  Receipt Date: 20140324
  Transmission Date: 20141002
  Serious: No
  Sender: FDA-Public Use
  Company Number: US-PFIZER INC-2014063946

PATIENT
  Age: 64 Year
  Sex: Male

DRUGS (6)
  1. CODEINE [Suspect]
     Dosage: UNK
  2. NEURONTIN [Concomitant]
     Dosage: UNK
  3. ADVAIR [Concomitant]
     Dosage: UNK
  4. CRESTOR [Concomitant]
     Dosage: UNK
  5. LEVEMIR [Concomitant]
     Dosage: UNK
  6. PROVENTIL [Concomitant]
     Dosage: UNK

REACTIONS (1)
  - Drug hypersensitivity [Unknown]
